FAERS Safety Report 6627087-X (Version None)
Quarter: 2010Q1

REPORT INFORMATION
  Report Type: 
  Country: None (occurrence: None)
  Receive Date: 20100311
  Receipt Date: 20090729
  Transmission Date: 20100710
  Serious: No
  Sender: FDA-Public Use
  Company Number: A0799323A

PATIENT
  Age: 33 Year
  Sex: Female

DRUGS (4)
  1. NICORETTE (MINT) [Suspect]
     Dates: start: 20090728
  2. ANXIOLYTICS [Concomitant]
  3. ANTIDEPRESSANTS [Concomitant]
  4. PAIN KILLERS [Concomitant]

REACTIONS (1)
  - NICOTINE DEPENDENCE [None]
